FAERS Safety Report 5055647-9 (Version None)
Quarter: 2006Q3

REPORT INFORMATION
  Report Type: 
  Country: None (occurrence: None)
  Receive Date: 20060714
  Receipt Date: 20060627
  Transmission Date: 20061208
  Serious: Yes (Death)
  Sender: FDA-Public Use
  Company Number: US200606001694

PATIENT
  Sex: Male

DRUGS (3)
  1. FORTEO [Suspect]
  2. CYMBALTA [Suspect]
  3. FORTEO PEN (FORTEO PEN) [Concomitant]

REACTIONS (3)
  - CARDIAC FAILURE [None]
  - GENERAL PHYSICAL HEALTH DETERIORATION [None]
  - PNEUMONIA [None]
